FAERS Safety Report 11192437 (Version 6)
Quarter: 2016Q3

REPORT INFORMATION
  Report Type: Spontaneous
  Country: JP (occurrence: JP)
  Receive Date: 20150616
  Receipt Date: 20160919
  Transmission Date: 20161109
  Serious: Yes (Death, Other)
  Sender: FDA-Public Use
  Company Number: JP-PFIZER INC-2015200409

PATIENT
  Age: 63 Year
  Sex: Male
  Weight: 43 kg

DRUGS (9)
  1. LORAZEPAM. [Suspect]
     Active Substance: LORAZEPAM
     Dosage: 1.5 MG, DAILY
     Route: 048
  2. BROTIZOLAM [Suspect]
     Active Substance: BROTIZOLAM
     Indication: INSOMNIA
     Dosage: 0.25 MG, 1X/DAY
     Route: 048
     Dates: start: 20150428, end: 20150507
  3. FLUNITRAZEPAM [Concomitant]
     Active Substance: FLUNITRAZEPAM
     Indication: INSOMNIA
     Dosage: 2 MG, 1X/DAY
     Route: 048
     Dates: start: 20150428, end: 20150511
  4. RISPERIDONE PFIZER [Suspect]
     Active Substance: RISPERIDONE
     Dosage: 1 MG, 1X/DAY
     Route: 048
     Dates: start: 20150508
  5. BROTIZOLAM [Suspect]
     Active Substance: BROTIZOLAM
     Indication: DELIRIUM TREMENS
  6. TAMSULOSIN [Concomitant]
     Active Substance: TAMSULOSIN
     Indication: POLLAKIURIA
     Dosage: 0.2 MG, 1X/DAY
     Route: 048
     Dates: start: 20150430, end: 20150511
  7. CHAMPIX 1MG [Suspect]
     Active Substance: VARENICLINE TARTRATE
     Dosage: 1 MG, 2X/DAY
     Route: 048
     Dates: start: 20150428
  8. CHAMPIX 1MG [Suspect]
     Active Substance: VARENICLINE TARTRATE
     Dosage: 0.5 MG, DAILY
     Route: 048
  9. OPTIRAY 320 [Suspect]
     Active Substance: IOVERSOL
     Indication: VENOGRAM
     Dosage: 320 MG, 1X/DAY
     Route: 042
     Dates: start: 20150512

REACTIONS (9)
  - Cardio-respiratory arrest [Fatal]
  - Hallucination [Recovering/Resolving]
  - Anxiety [Unknown]
  - Respiratory arrest [Unknown]
  - Arrhythmia [Fatal]
  - Cardiac arrest [Unknown]
  - Persecutory delusion [Recovering/Resolving]
  - Sudden death [Fatal]
  - Delirium [Recovering/Resolving]

NARRATIVE: CASE EVENT DATE: 20150508
